FAERS Safety Report 24135993 (Version 1)
Quarter: 2024Q3

REPORT INFORMATION
  Report Type: Spontaneous
  Country: US (occurrence: None)
  Receive Date: 20240724
  Receipt Date: 20240724
  Transmission Date: 20241016
  Serious: Yes (Hospitalization)
  Sender: Public
  Company Number: None

PATIENT
  Age: 76 Year
  Sex: Female

DRUGS (8)
  1. HUMIRA [Suspect]
     Active Substance: ADALIMUMAB
     Indication: Psoriasis
     Dosage: OTHER QUANTITY : 40MG/0.4ML;?OTHER FREQUENCY : OTHER;?
     Route: 058
     Dates: start: 20221129
  2. PANTOPRAZOLE [Concomitant]
     Active Substance: PANTOPRAZOLE
  3. ATORVASTATIN [Concomitant]
  4. NM-6603 [Concomitant]
     Active Substance: NM-6603
  5. PROLIA [Concomitant]
     Active Substance: DENOSUMAB
  6. CALCIUM [Concomitant]
  7. FISH OIL [Concomitant]
  8. PROBIOTICS NOS [Concomitant]
     Active Substance: PROBIOTICS NOS

REACTIONS (2)
  - Cardiac failure [None]
  - Blood cholesterol increased [None]

NARRATIVE: CASE EVENT DATE: 20240701
